FAERS Safety Report 6826948-6 (Version None)
Quarter: 2010Q3

REPORT INFORMATION
  Report Type: 
  Country: None (occurrence: None)
  Receive Date: 20100709
  Receipt Date: 20100702
  Transmission Date: 20110219
  Serious: Yes (Hospitalization)
  Sender: FDA-Public Use
  Company Number: AU-ROCHE-713497

PATIENT
  Sex: Female
  Weight: 75 kg

DRUGS (8)
  1. TRASTUZUMAB [Suspect]
     Dosage: LOADING DOSE
     Route: 042
     Dates: start: 20090508
  2. TRASTUZUMAB [Suspect]
     Dosage: DOSE LEVEL REPORTED AS 6MG/KG, FORM: VIALS, LAST DOSE PRIOR TO SAE 19 MARCH 2010,MAINTAINING DOSE
     Route: 042
     Dates: start: 20090530
  3. DOCETAXEL [Suspect]
     Dosage: DOSE LEVEL REPORTED AS 75MG/M2, FORM REPORTED AS VIALS, LAST DOSE PRIOR TO SAE 11 SEP 2009
     Route: 042
     Dates: start: 20090508
  4. CARBOPLATIN [Suspect]
     Dosage: DOSE LEVEL REPORTED AS 6AUC FORM: VIALS, LAST DOSE PRIOR TO SAE 11 SEP 2009
     Route: 042
     Dates: start: 20090508
  5. PANADOL [Concomitant]
     Dosage: TOTAL DAILY DOSE 2 TAB
     Dates: start: 20090814
  6. PANADOL [Concomitant]
     Dates: start: 20090902
  7. FENTANYL CITRATE [Concomitant]
     Dates: end: 20090902
  8. OXYCONTIN [Concomitant]
     Dates: start: 20090903

REACTIONS (1)
  - CEREBROVASCULAR ARTERIOVENOUS MALFORMATION [None]
